FAERS Safety Report 9262147 (Version 3)
Quarter: 2013Q2

REPORT INFORMATION
  Report Type: Spontaneous
  Country: US (occurrence: US)
  Receive Date: 20130430
  Receipt Date: 20130509
  Transmission Date: 20140414
  Serious: Yes (Death)
  Sender: FDA-Public Use
  Company Number: US-009507513-1304USA014559

PATIENT
  Sex: Female

DRUGS (1)
  1. SAPHRIS [Suspect]
     Dosage: 10 MG, BID
     Route: 060
     Dates: start: 201005

REACTIONS (2)
  - Death [Fatal]
  - Physical abuse [Not Recovered/Not Resolved]
